FAERS Safety Report 21143579 (Version 1)
Quarter: 2022Q3

REPORT INFORMATION
  Report Type: Spontaneous
  Country: US (occurrence: None)
  Receive Date: 20220728
  Receipt Date: 20220728
  Transmission Date: 20221026
  Serious: Yes (Other)
  Sender: FDA-Public Use
  Company Number: None

PATIENT
  Age: 65 Day
  Sex: Female
  Weight: 130.95 kg

DRUGS (9)
  1. MAGNESIUM CITRATE [Suspect]
     Active Substance: MAGNESIUM CITRATE
     Indication: Bowel preparation
     Dosage: OTHER QUANTITY : 1 OUNCE(S);?FREQUENCY : DAILY;?
     Route: 048
  2. blood pressure meds [Concomitant]
  3. anxiety med [Concomitant]
  4. UNSPECIFIED INGREDIENT [Concomitant]
     Active Substance: UNSPECIFIED INGREDIENT
  5. fosemax [Concomitant]
  6. vitamin d script [Concomitant]
  7. multi vitamin [Concomitant]
  8. CALCIUM [Concomitant]
     Active Substance: CALCIUM
  9. otc vitamin d [Concomitant]

REACTIONS (3)
  - Abdominal discomfort [None]
  - Listless [None]
  - Anorectal discomfort [None]

NARRATIVE: CASE EVENT DATE: 20220726
